FAERS Safety Report 10914422 (Version 3)
Quarter: 2015Q4

REPORT INFORMATION
  Report Type: Spontaneous
  Country: US (occurrence: US)
  Receive Date: 20150313
  Receipt Date: 20151202
  Transmission Date: 20160304
  Serious: No
  Sender: FDA-Public Use
  Company Number: US-GLAXOSMITHKLINE-US2015GSK011541

PATIENT
  Sex: Female

DRUGS (1)
  1. VENTOLIN HFA [Suspect]
     Active Substance: ALBUTEROL SULFATE
     Indication: ASTHMA
     Dosage: UNK
     Route: 055
     Dates: start: 2013

REACTIONS (6)
  - Aphonia [Unknown]
  - Emotional distress [Unknown]
  - Malaise [Unknown]
  - Wound [Recovered/Resolved]
  - Laryngitis [Unknown]
  - Dysphonia [Unknown]
